FAERS Safety Report 19221294 (Version 1)
Quarter: 2021Q2

REPORT INFORMATION
  Report Type: Spontaneous
  Country: CA (occurrence: CA)
  Receive Date: 20210505
  Receipt Date: 20210505
  Transmission Date: 20210717
  Serious: Yes (Hospitalization, Other)
  Sender: FDA-Public Use
  Company Number: CA-AVONDALE PHARMACEUTICALS, LLC-2110240

PATIENT
  Age: 30 Year
  Sex: Male

DRUGS (14)
  1. OLESTYR [Suspect]
     Active Substance: CHOLESTYRAMINE
     Route: 065
  2. PRAVASTATIN. [Suspect]
     Active Substance: PRAVASTATIN
     Route: 065
  3. MEVACOR [Suspect]
     Active Substance: LOVASTATIN
     Route: 065
  4. NIACOR [Suspect]
     Active Substance: NIACIN
     Indication: LOW DENSITY LIPOPROTEIN
     Route: 065
  5. LIPITOR [Suspect]
     Active Substance: ATORVASTATIN CALCIUM
     Route: 065
  6. LODALIS [Suspect]
     Active Substance: COLESEVELAM HYDROCHLORIDE
     Route: 065
  7. ROSUVASTATIN. [Suspect]
     Active Substance: ROSUVASTATIN
     Route: 065
  8. LESCOL [Suspect]
     Active Substance: FLUVASTATIN SODIUM
     Route: 065
  9. REPATHA [Suspect]
     Active Substance: EVOLOCUMAB
     Route: 065
  10. EICOSAPENTAENOIC ACID ETHYL ESTER [Suspect]
     Active Substance: ICOSAPENT ETHYL
     Route: 065
  11. EZETIMIDE 10 MG [Suspect]
     Active Substance: EZETIMIBE
     Route: 065
  12. JUXTAPID [Suspect]
     Active Substance: LOMITAPIDE MESYLATE
     Route: 065
  13. ZOCOR [Suspect]
     Active Substance: SIMVASTATIN
     Route: 065
  14. PRALUENT [Suspect]
     Active Substance: ALIROCUMAB
     Route: 065

REACTIONS (3)
  - Cerebrovascular accident [Unknown]
  - Myocardial infarction [Unknown]
  - Drug ineffective [Unknown]
